FAERS Safety Report 18270584 (Version 1)
Quarter: 2020Q3

REPORT INFORMATION
  Report Type: Report from Study
  Country: US (occurrence: US)
  Receive Date: 20200915
  Receipt Date: 20200915
  Transmission Date: 20201103
  Serious: Yes (Death, Hospitalization, Other)
  Sender: FDA-Public Use
  Company Number: US-JNJFOC-A-NJ2019-188720

PATIENT
  Age: 55 Year
  Sex: Female
  Weight: 63.49 kg

DRUGS (5)
  1. SILDENAFIL CITRATE. [Concomitant]
     Active Substance: SILDENAFIL CITRATE
  2. TREPROSTINIL. [Suspect]
     Active Substance: TREPROSTINIL
     Dosage: UNK
     Route: 065
     Dates: start: 20200405
  3. OPSUMIT [Suspect]
     Active Substance: MACITENTAN
     Indication: PULMONARY ARTERIAL HYPERTENSION
     Dosage: 10 MG, QD
     Route: 048
  4. TREPROSTINIL. [Suspect]
     Active Substance: TREPROSTINIL
     Indication: PRODUCT USED FOR UNKNOWN INDICATION
     Dosage: UNK
     Route: 065
  5. REMODULIN [Concomitant]
     Active Substance: TREPROSTINIL
     Dosage: 40 NG/KG, PER MIN
     Route: 065

REACTIONS (22)
  - Death [Fatal]
  - Pulmonary arterial hypertension [Unknown]
  - Pyrexia [Unknown]
  - Syncope [Unknown]
  - Respiration abnormal [Unknown]
  - Dizziness [Unknown]
  - Hospitalisation [Unknown]
  - Contusion [Unknown]
  - Influenza [Unknown]
  - Productive cough [Unknown]
  - Therapy non-responder [Unknown]
  - Head injury [Unknown]
  - Dyspnoea [Unknown]
  - Illness [Unknown]
  - Sputum discoloured [Unknown]
  - Fall [Unknown]
  - Condition aggravated [Unknown]
  - Cough [Unknown]
  - Pain [Unknown]
  - Headache [Unknown]
  - Terminal state [Unknown]
  - Rales [Unknown]
